FAERS Safety Report 9046882 (Version 1)
Quarter: 2013Q1

REPORT INFORMATION
  Report Type: Spontaneous
  Country: US (occurrence: None)
  Receive Date: 20130129
  Receipt Date: 20130129
  Transmission Date: 20140127
  Serious: Yes (Death)
  Sender: FDA-Public Use
  Company Number: None

PATIENT
  Age: 56 Year
  Sex: Male
  Weight: 65.77 kg

DRUGS (1)
  1. ZOSYN [Suspect]
     Indication: OSTEOMYELITIS
     Route: 042
     Dates: start: 20110707, end: 20110804

REACTIONS (4)
  - Renal failure [None]
  - Rash [None]
  - Dyspnoea [None]
  - Dialysis [None]
